FAERS Safety Report 4836706-X (Version None)
Quarter: 2005Q4

REPORT INFORMATION
  Report Type: 
  Country: None (occurrence: None)
  Receive Date: 20051121
  Receipt Date: 20051114
  Transmission Date: 20060501
  Serious: Yes (Death)
  Sender: FDA-Public Use
  Company Number: 2005-09-1747

PATIENT
  Age: 58 Year
  Sex: Male
  Weight: 65 kg

DRUGS (13)
  1. PEG-INTRON [Suspect]
     Indication: HEPATITIS C
     Dosage: 90-60* MCG QW SUBCUTANEOUS; SEE IMAGE
     Route: 058
     Dates: start: 20050527, end: 20050728
  2. PEG-INTRON [Suspect]
     Indication: HEPATITIS C
     Dosage: 90-60* MCG QW SUBCUTANEOUS; SEE IMAGE
     Route: 058
     Dates: start: 20050804, end: 20050826
  3. PEG-INTRON [Suspect]
     Indication: HEPATITIS C
     Dosage: 90-60* MCG QW SUBCUTANEOUS; SEE IMAGE
     Route: 058
     Dates: start: 20050527, end: 20050903
  4. PEG-INTRON [Suspect]
     Indication: HEPATITIS C
     Dosage: 90-60* MCG QW SUBCUTANEOUS; SEE IMAGE
     Route: 058
     Dates: start: 20050903, end: 20050903
  5. REBETOL [Suspect]
     Indication: HEPATITIS C
     Dosage: 600-200* MG ORAL; SEE IMAGE
     Route: 048
     Dates: start: 20050527, end: 20050803
  6. REBETOL [Suspect]
     Indication: HEPATITIS C
     Dosage: 600-200* MG ORAL; SEE IMAGE
     Route: 048
     Dates: start: 20050527, end: 20050902
  7. REBETOL [Suspect]
     Indication: HEPATITIS C
     Dosage: 600-200* MG ORAL; SEE IMAGE
     Route: 048
     Dates: start: 20050804, end: 20050902
  8. ZANTAC [Concomitant]
  9. BERIZYM GRANULES [Concomitant]
  10. GASMOTIN (MOSAPRIDE CITRATE) TABLETS [Concomitant]
  11. BENZALIN TABLETS [Concomitant]
  12. ETHYL LOFLAZEPATE TABLETS [Concomitant]
  13. DOGMATYL TABLETS [Concomitant]

REACTIONS (3)
  - ANOREXIA [None]
  - FATIGUE [None]
  - HAEMOGLOBIN DECREASED [None]
